FAERS Safety Report 19036992 (Version 1)
Quarter: 2021Q1

REPORT INFORMATION
  Report Type: Spontaneous
  Country: US (occurrence: US)
  Receive Date: 20210322
  Receipt Date: 20210322
  Transmission Date: 20210420
  Serious: Yes (Hospitalization)
  Sender: FDA-Public Use
  Company Number: None

PATIENT
  Age: 69 Year
  Sex: Male
  Weight: 77.4 kg

DRUGS (15)
  1. SIMVASTATIN 20MG [Concomitant]
     Active Substance: SIMVASTATIN
  2. SUCRALFATE 1GM [Concomitant]
  3. OCTREOTIDE. [Suspect]
     Active Substance: OCTREOTIDE
     Indication: GASTROINTESTINAL ARTERIOVENOUS MALFORMATION
     Route: 058
     Dates: start: 20190912, end: 20210302
  4. ESOPMEPRAZOLE 40MG [Concomitant]
  5. NORCO [Concomitant]
     Active Substance: ACETAMINOPHEN\HYDROCODONE BITARTRATE
  6. NITROGLYCERIN 0.4MG [Concomitant]
  7. ASPIRIN 81MG [Concomitant]
     Active Substance: ASPIRIN
  8. PROCHLORPERAZINE 10MG [Concomitant]
  9. LAMOTRIGINE 150MG [Concomitant]
     Active Substance: LAMOTRIGINE
  10. MELATONIN?CHAMOMILE FLOWER TABLET [Concomitant]
  11. TRIAMTERENE?HCTZ 37.5?25MG [Concomitant]
  12. HYDROXYZINE [Concomitant]
     Active Substance: HYDROXYZINE HYDROCHLORIDE
  13. ACETAZOLAMIDE 250MG [Concomitant]
  14. URSODIOL 300MG [Concomitant]
  15. PAROXETINE 20MG [Concomitant]
     Active Substance: PAROXETINE

REACTIONS (1)
  - Gastric haemorrhage [None]

NARRATIVE: CASE EVENT DATE: 20210315
